FAERS Safety Report 20522544 (Version 1)
Quarter: 2022Q1

REPORT INFORMATION
  Report Type: Spontaneous
  Country: US (occurrence: US)
  Receive Date: 20220226
  Receipt Date: 20220226
  Transmission Date: 20220423
  Serious: Yes (Other)
  Sender: FDA-Public Use
  Company Number: US-NOVARTISPH-NVSC2022US045831

PATIENT
  Age: 25 Year
  Sex: Male

DRUGS (3)
  1. RANITIDINE [Suspect]
     Active Substance: RANITIDINE
     Indication: Dyspepsia
     Dosage: 150 MG,300 MG,,DAILY,
     Route: 048
     Dates: start: 199001, end: 201902
  2. RANITIDINE [Suspect]
     Active Substance: RANITIDINE
     Indication: Dyspepsia
     Dosage: 150 MG,300 MG,,DAILY,
     Route: 048
     Dates: start: 199001, end: 201902
  3. RANITIDINE [Suspect]
     Active Substance: RANITIDINE
     Indication: Dyspepsia
     Dosage: ,,,UNKNOWN AT THIS TIME,,DAILY,
     Route: 048
     Dates: start: 199001, end: 201902

REACTIONS (5)
  - Oesophageal carcinoma [Unknown]
  - Tongue neoplasm malignant stage unspecified [Unknown]
  - Head and neck cancer [Unknown]
  - Head and neck cancer [Unknown]
  - Incorrect dose administered [Unknown]

NARRATIVE: CASE EVENT DATE: 19900301
